FAERS Safety Report 7525897-8 (Version None)
Quarter: 2011Q2

REPORT INFORMATION
  Report Type: 
  Country: None (occurrence: None)
  Receive Date: 20110606
  Receipt Date: 20110527
  Transmission Date: 20111010
  Serious: Yes (Death)
  Sender: FDA-Public Use
  Company Number: B0700775A

PATIENT
  Sex: Female

DRUGS (2)
  1. DEXAMETHASONE [Concomitant]
     Indication: IDIOPATHIC THROMBOCYTOPENIC PURPURA
  2. PROMACTA [Suspect]
     Indication: IDIOPATHIC THROMBOCYTOPENIC PURPURA
     Dosage: 12.5MG PER DAY
     Route: 048
     Dates: start: 20110113, end: 20110214

REACTIONS (4)
  - THROMBOSIS [None]
  - SHOCK [None]
  - MULTI-ORGAN FAILURE [None]
  - DISSEMINATED INTRAVASCULAR COAGULATION [None]
